FAERS Safety Report 9336944 (Version 2)
Quarter: 2013Q2

REPORT INFORMATION
  Report Type: Report from Study
  Country: BR (occurrence: BR)
  Receive Date: 20130607
  Receipt Date: 20130624
  Transmission Date: 20140414
  Serious: Yes (Other)
  Sender: FDA-Public Use
  Company Number: BR-ROCHE-1231863

PATIENT
  Sex: Female
  Weight: 50 kg

DRUGS (3)
  1. INTERFERON ALFA-2A [Suspect]
     Indication: HEPATITIS C
     Route: 058
     Dates: start: 201111, end: 201303
  2. RIBAVIRIN [Suspect]
     Indication: HEPATITIS C
     Dosage: 2 TABLETS IN THE MORNINGS AND ONE IN THE EVENINGS
     Route: 065
     Dates: start: 201111, end: 201303
  3. LEVOID [Concomitant]
     Indication: HYPOTHYROIDISM
     Route: 065

REACTIONS (3)
  - Viral load increased [Unknown]
  - Full blood count decreased [Unknown]
  - Immunodeficiency [Unknown]
